FAERS Safety Report 5849805-0 (Version None)
Quarter: 2008Q3

REPORT INFORMATION
  Report Type: 
  Country: None (occurrence: None)
  Receive Date: 20080818
  Receipt Date: 20080818
  Transmission Date: 20090109
  Serious: Yes (Hospitalization)
  Sender: FDA-Public Use
  Company Number: None

PATIENT
  Age: 12 Year
  Sex: Male
  Weight: 41.7 kg

DRUGS (2)
  1. METHYLPREDNISOLONE [Suspect]
     Indication: COLITIS ULCERATIVE
     Dosage: 16 MG Q8H IV
     Route: 042
     Dates: start: 20080805, end: 20080813
  2. METHYLPREDNISOLONE [Suspect]

REACTIONS (2)
  - INFLAMMATION [None]
  - NO THERAPEUTIC RESPONSE [None]
